FAERS Safety Report 8186579 (Version 5)
Quarter: 2012Q4

REPORT INFORMATION
  Report Type: Report from Study
  Country: US (occurrence: US)
  Receive Date: 20111018
  Receipt Date: 20120913
  Transmission Date: 20130627
  Serious: Yes (Hospitalization)
  Sender: FDA-Public Use
  Company Number: US-UCBSA-043276

PATIENT
  Age: 52 Year
  Sex: Male
  Weight: 118 kg

DRUGS (26)
  1. CIMZIA [Suspect]
     Indication: CROHN^S DISEASE
     Route: 058
     Dates: start: 20110111, end: 20110924
  2. CIMZIA [Suspect]
     Indication: CROHN^S DISEASE
     Route: 058
     Dates: start: 20100609, end: 20100915
  3. CIMZIA [Suspect]
     Indication: CROHN^S DISEASE
     Route: 058
     Dates: start: 20100428, end: 20100526
  4. PREDNISONE [Concomitant]
     Indication: CROHN^S DISEASE
     Dates: start: 201110
  5. PREDNISONE [Concomitant]
     Indication: CROHN^S DISEASE
     Dosage: 60 MG
     Route: 048
     Dates: start: 2011, end: 2011
  6. PREDNISONE [Concomitant]
     Indication: CROHN^S DISEASE
     Dosage: DAILY DOSE: 10 MG
     Route: 048
     Dates: start: 200802, end: 20111004
  7. ACETAMINOPHEN [Concomitant]
     Indication: CROHN^S DISEASE
  8. POTASSIUM [Concomitant]
     Route: 048
  9. CALCIUM CARBONATE [Concomitant]
  10. CALCIUM OXALATE [Concomitant]
     Indication: HYPERPHOSPHATAEMIA
  11. CALCIUM ACETATE [Concomitant]
  12. GLARGINE [Concomitant]
     Dosage: 10 UNITS EVERY DAY
  13. GLARGINE [Concomitant]
     Dosage: 12 UNITS EVERY DAY
  14. LEVEMIR [Concomitant]
     Dosage: 10 U
  15. NOVOLOG [Concomitant]
     Dosage: 1 unit
  16. VITOZA [Concomitant]
  17. TRILIPIX [Concomitant]
  18. OXYCODONE [Concomitant]
  19. NEURONTIN [Concomitant]
  20. FLONASE [Concomitant]
  21. RENAGEL [Concomitant]
  22. METOPROLOL [Concomitant]
  23. HYDRALAZINE [Concomitant]
  24. FUROSEMIDE [Concomitant]
  25. CUBICIN [Concomitant]
     Dosage: 720 MG QD TO 11/7
     Route: 042
  26. AVANDARYL [Concomitant]
     Dosage: 4 MG - 1 MG

REACTIONS (1)
  - Sepsis [Recovered/Resolved with Sequelae]
